FAERS Safety Report 4696365-6 (Version None)
Quarter: 2005Q2

REPORT INFORMATION
  Report Type: 
  Country: None (occurrence: None)
  Receive Date: 20050615
  Receipt Date: 20050125
  Transmission Date: 20051028
  Serious: Yes (Other)
  Sender: FDA-Public Use
  Company Number: WAES 0502USA00675

PATIENT
  Age: 80 Year
  Sex: Female

DRUGS (2)
  1. COZAAR [Suspect]
     Dosage: 100 MG/DAILY/PO
     Route: 048
  2. COZAAR [Suspect]
     Dosage: 50 MG/DAILY/PO
     Route: 048

REACTIONS (2)
  - BLOOD CREATININE INCREASED [None]
  - BLOOD UREA INCREASED [None]
